FAERS Safety Report 24067833 (Version 1)
Quarter: 2024Q3

REPORT INFORMATION
  Report Type: Spontaneous
  Country: AR (occurrence: AR)
  Receive Date: 20240710
  Receipt Date: 20240710
  Transmission Date: 20241016
  Serious: Yes (Other)
  Sender: NOVO NORDISK
  Company Number: AR-NOVOPROD-1249639

PATIENT
  Sex: Male

DRUGS (1)
  1. TRESIBA [Suspect]
     Active Substance: INSULIN DEGLUDEC
     Indication: Device therapy
     Dosage: 36 IU, QD
     Route: 058
     Dates: start: 2016

REACTIONS (4)
  - Hypoglycaemia [Unknown]
  - Device dislocation [Unknown]
  - Incorrect dose administered by device [Unknown]
  - Product storage error [Unknown]

NARRATIVE: CASE EVENT DATE: 20240627
